FAERS Safety Report 15327350 (Version 2)
Quarter: 2018Q3

REPORT INFORMATION
  Report Type: Spontaneous
  Country: US (occurrence: US)
  Receive Date: 20180828
  Receipt Date: 20180831
  Transmission Date: 20181010
  Serious: Yes (Hospitalization, Other)
  Sender: FDA-Public Use
  Company Number: US-PFIZER INC-2018342158

PATIENT
  Age: 70 Year
  Sex: Female
  Weight: 95.25 kg

DRUGS (1)
  1. IBRANCE [Suspect]
     Active Substance: PALBOCICLIB
     Indication: BONE CANCER
     Dosage: 75 MG, DAILY (BY MOUTH 1 TIME DAILY FOR 21 DAYS)
     Route: 048
     Dates: start: 2018, end: 20180812

REACTIONS (5)
  - Dyspnoea [Unknown]
  - Myocardial infarction [Recovered/Resolved with Sequelae]
  - Vomiting [Unknown]
  - Diarrhoea [Unknown]
  - Product use in unapproved indication [Unknown]

NARRATIVE: CASE EVENT DATE: 2018
